FAERS Safety Report 6118391-2 (Version None)
Quarter: 2009Q1

REPORT INFORMATION
  Report Type: 
  Country: None (occurrence: None)
  Receive Date: 20090314
  Receipt Date: 20090219
  Transmission Date: 20090719
  Serious: No
  Sender: FDA-Public Use
  Company Number: US-ABBOTT-09P-163-0557971-00

PATIENT

DRUGS (2)
  1. HUMIRA [Suspect]
     Indication: POLYARTHRITIS
     Dates: start: 20080101, end: 20080101
  2. METHOTREXATE [Concomitant]
     Indication: DRUG USE FOR UNKNOWN INDICATION
     Dates: start: 20070101, end: 20080101

REACTIONS (4)
  - LUNG INFILTRATION [None]
  - NIGHT SWEATS [None]
  - PYREXIA [None]
  - SKIN LESION [None]
